FAERS Safety Report 8863882 (Version 1)
Quarter: 2012Q4

REPORT INFORMATION
  Report Type: 
  Country: US (occurrence: US)
  Receive Date: 20121024
  Receipt Date: 20121024
  Transmission Date: 20130627
  Serious: No
  Sender: FDA-Public Use
  Company Number: US-AMGEN-USASP2011064770

PATIENT
  Age: 44 Year
  Sex: Female

DRUGS (5)
  1. ENBREL [Suspect]
     Indication: PRODUCT USED FOR UNKNOWN INDICATION
     Dosage: 50 mg, qwk
  2. SIMVASTATIN [Concomitant]
     Dosage: 10 mg, UNK
  3. LEVOTHYROXIN [Concomitant]
     Dosage: 100 mug, UNK
  4. HYDROCHLOROTHIAZIDE W/TRIAMTERENE [Concomitant]
     Dosage: 50 mg, UNK
  5. PLAQUENIL                          /00072602/ [Concomitant]
     Dosage: 200 mg, UNK

REACTIONS (2)
  - Oropharyngeal pain [Unknown]
  - Headache [Unknown]
